FAERS Safety Report 10971876 (Version 2)
Quarter: 2015Q2

REPORT INFORMATION
  Report Type: Report from Study
  Country: BR (occurrence: BR)
  Receive Date: 20150331
  Receipt Date: 20150402
  Transmission Date: 20150821
  Serious: Yes (Hospitalization, Other)
  Sender: FDA-Public Use
  Company Number: BR-SA-2014SA114878

PATIENT
  Age: 41 Year
  Sex: Male
  Weight: 73.7 kg

DRUGS (5)
  1. TACROLIMUS. [Suspect]
     Active Substance: TACROLIMUS
     Indication: RENAL TRANSPLANT
     Route: 048
     Dates: start: 20150126
  2. EVEROLIMUS [Suspect]
     Active Substance: EVEROLIMUS
     Indication: RENAL TRANSPLANT
     Route: 065
     Dates: start: 20141003, end: 20150126
  3. TACROLIMUS. [Suspect]
     Active Substance: TACROLIMUS
     Indication: RENAL TRANSPLANT
     Route: 048
     Dates: start: 20140815
  4. THYMOGLOBULINE [Suspect]
     Active Substance: LAPINE T-LYMPHOCYTE IMMUNE GLOBULIN
     Indication: RENAL TRANSPLANT
     Route: 042
     Dates: start: 20140808
  5. EVEROLIMUS [Suspect]
     Active Substance: EVEROLIMUS
     Indication: RENAL TRANSPLANT
     Route: 048
     Dates: start: 20140808, end: 20140827

REACTIONS (6)
  - Postoperative wound infection [Recovered/Resolved]
  - Transplant dysfunction [Recovered/Resolved]
  - Hypertensive crisis [Not Recovered/Not Resolved]
  - Abdominal wound dehiscence [Recovered/Resolved]
  - Hypertensive emergency [Recovered/Resolved]
  - Dengue fever [Recovered/Resolved]

NARRATIVE: CASE EVENT DATE: 20140820
